FAERS Safety Report 18197933 (Version 1)
Quarter: 2020Q3

REPORT INFORMATION
  Report Type: Spontaneous
  Country: US (occurrence: US)
  Receive Date: 20200826
  Receipt Date: 20200826
  Transmission Date: 20201103
  Serious: Yes (Hospitalization, Other)
  Sender: FDA-Public Use
  Company Number: US-PFIZER INC-2020326875

PATIENT
  Age: 68 Year
  Sex: Male
  Weight: 97.07 kg

DRUGS (1)
  1. PHENYTOIN. [Suspect]
     Active Substance: PHENYTOIN
     Dosage: UNK  (200MG IN MORNING, 130MG AT NIGHT)
     Route: 048

REACTIONS (3)
  - Cerebrovascular accident [Unknown]
  - Arteriovenous malformation [Unknown]
  - Seizure [Unknown]
